FAERS Safety Report 8851130 (Version 2)
Quarter: 2012Q4

REPORT INFORMATION
  Report Type: 
  Country: AU (occurrence: AU)
  Receive Date: 20121020
  Receipt Date: 20121214
  Transmission Date: 20130627
  Serious: Yes (Hospitalization, Other)
  Sender: FDA-Public Use
  Company Number: AU-009507513-1208AUS008790

PATIENT
  Age: 53 Year
  Sex: Female
  Weight: 73 kg

DRUGS (3)
  1. VICTRELIS 200 MG [Suspect]
     Indication: HEPATIC CIRRHOSIS
     Dosage: 800 mg, tid
     Route: 048
     Dates: start: 20120405, end: 20120817
  2. PEGATRON [Suspect]
     Indication: HEPATIC CIRRHOSIS
     Dosage: 72 Microgram, UNK
     Route: 058
     Dates: start: 20120405, end: 20120817
  3. REBETOL [Suspect]
     Indication: HEPATITIS C
     Dosage: UNK
     Dates: end: 20120817

REACTIONS (7)
  - Vasculitic rash [Recovered/Resolved]
  - Pain in extremity [Recovered/Resolved]
  - Oedema peripheral [Recovered/Resolved]
  - Vasculitis [Unknown]
  - Neutropenia [Unknown]
  - Adverse event [Unknown]
  - Anxiety [Unknown]
